FAERS Safety Report 5950057-1 (Version None)
Quarter: 2008Q4

REPORT INFORMATION
  Report Type: 
  Country: None (occurrence: None)
  Receive Date: 20081112
  Receipt Date: 20081107
  Transmission Date: 20090506
  Serious: Yes (Death, Hospitalization)
  Sender: FDA-Public Use
  Company Number: US-ROCHE-595749

PATIENT
  Sex: Female

DRUGS (1)
  1. MYCOPHENOLATE MOFETIL [Suspect]
     Indication: DRUG USE FOR UNKNOWN INDICATION
     Route: 065
     Dates: start: 20080201

REACTIONS (6)
  - DEATH [None]
  - DEHYDRATION [None]
  - HEPATIC FAILURE [None]
  - PANCREATITIS [None]
  - RENAL FAILURE [None]
  - RESPIRATORY FAILURE [None]
